FAERS Safety Report 4692720-9 (Version None)
Quarter: 2005Q2

REPORT INFORMATION
  Report Type: 
  Country: None (occurrence: None)
  Receive Date: 20050617
  Receipt Date: 20050606
  Transmission Date: 20051028
  Serious: Yes (Hospitalization)
  Sender: FDA-Public Use
  Company Number: US-MERCK-0506USA01073

PATIENT
  Age: 61 Year
  Sex: Male
  Weight: 109 kg

DRUGS (5)
  1. VIOXX [Suspect]
     Indication: BACK PAIN
     Route: 048
     Dates: start: 20000215, end: 20041001
  2. VIOXX [Suspect]
     Indication: NECK PAIN
     Route: 048
     Dates: start: 20000215, end: 20041001
  3. ADVIL [Concomitant]
     Route: 065
  4. PRINZIDE [Concomitant]
     Route: 048
  5. ADVAIR DISKUS 100/50 [Concomitant]
     Route: 065

REACTIONS (7)
  - CAROTID ARTERY DISEASE [None]
  - COLONIC POLYP [None]
  - DIVERTICULUM [None]
  - EMOTIONAL DISTRESS [None]
  - HYPERLIPIDAEMIA [None]
  - HYPERTENSION [None]
  - MYOCARDIAL INFARCTION [None]
